FAERS Safety Report 11758621 (Version 1)
Quarter: 2015Q4

REPORT INFORMATION
  Report Type: Spontaneous
  Country: US (occurrence: None)
  Receive Date: 20151119
  Receipt Date: 20151119
  Transmission Date: 20160304
  Serious: Yes (Hospitalization)
  Sender: FDA-Public Use
  Company Number: None

PATIENT
  Age: 70 Year
  Sex: Female
  Weight: 104.33 kg

DRUGS (4)
  1. CONTRAVE [Suspect]
     Active Substance: BUPROPION HYDROCHLORIDE\NALTREXONE HYDROCHLORIDE
     Indication: WEIGHT ABNORMAL
     Dosage: 1 QAM X 1WK, THEN?1 BID X 1WK, THEN 2?QPM + 1 PO QPM X 1WK
     Route: 048
     Dates: start: 20150710, end: 20150727
  2. OCUVITE [Concomitant]
     Active Substance: VITAMINS
  3. BENICAR [Concomitant]
     Active Substance: OLMESARTAN MEDOXOMIL
  4. VALTOREN [Concomitant]

REACTIONS (5)
  - Alopecia [None]
  - Urticaria [None]
  - Rash [None]
  - Pruritus [None]
  - Temperature intolerance [None]

NARRATIVE: CASE EVENT DATE: 20150727
